FAERS Safety Report 10032713 (Version 1)
Quarter: 2014Q1

REPORT INFORMATION
  Report Type: Spontaneous
  Country: US (occurrence: US)
  Receive Date: 20140324
  Receipt Date: 20140324
  Transmission Date: 20141002
  Serious: Yes (Other)
  Sender: FDA-Public Use
  Company Number: US-B.I. PHARMACEUTICALS,INC./RIDGEFIELD-2014-BI-12217BP

PATIENT
  Age: 54 Year
  Sex: 0

DRUGS (4)
  1. PRADAXA [Suspect]
     Indication: ATRIAL FIBRILLATION
     Dosage: 300 MG
     Route: 048
     Dates: start: 2014, end: 2014
  2. PRADAXA [Suspect]
     Dosage: 300 MG
     Route: 048
     Dates: start: 2014
  3. DIOVAN [Concomitant]
     Route: 065
  4. BYSTOLIC [Concomitant]
     Route: 065

REACTIONS (3)
  - Polyp [Recovered/Resolved]
  - Haemorrhage [Recovered/Resolved]
  - Haematocrit decreased [Recovered/Resolved]
